FAERS Safety Report 24349447 (Version 2)
Quarter: 2024Q4

REPORT INFORMATION
  Report Type: Spontaneous
  Country: IE (occurrence: IE)
  Receive Date: 20240923
  Receipt Date: 20241007
  Transmission Date: 20250115
  Serious: Yes (Life-Threatening, Hospitalization)
  Sender: TEVA
  Company Number: None

PATIENT
  Age: 53 Year
  Sex: Female

DRUGS (6)
  1. OMEPRAZOLE [Suspect]
     Active Substance: OMEPRAZOLE
     Indication: Gastrooesophageal reflux disease
     Dosage: OMEPRAZOLE TEVA
     Route: 048
     Dates: start: 20240827, end: 20240827
  2. altavitaD3 [Concomitant]
     Indication: Product used for unknown indication
     Route: 048
     Dates: start: 20231015
  3. altavitaD3 [Concomitant]
     Indication: Product used for unknown indication
     Route: 048
     Dates: start: 202310
  4. EZETIMIBE\ROSUVASTATIN [Suspect]
     Active Substance: EZETIMIBE\ROSUVASTATIN
     Indication: Hypercholesterolaemia
     Dosage: 20MG/10MG
     Route: 048
     Dates: start: 20240705
  5. LEXAPRO [Concomitant]
     Active Substance: ESCITALOPRAM OXALATE
     Indication: Product used for unknown indication
     Dosage: LEXAPRO (GENERIC) (G)
     Route: 048
     Dates: start: 202301
  6. GAVISCON [Concomitant]
     Active Substance: ALUMINUM HYDROXIDE\MAGNESIUM CARBONATE
     Indication: Dyspepsia
     Dosage: GAVISCON (G)
     Route: 065
     Dates: start: 2024

REACTIONS (3)
  - Anaphylactic reaction [Recovered/Resolved]
  - Rash [Recovered/Resolved]
  - Syncope [Recovered/Resolved]

NARRATIVE: CASE EVENT DATE: 20240827
